FAERS Safety Report 12107274 (Version 1)
Quarter: 2016Q1

REPORT INFORMATION
  Report Type: Spontaneous
  Country: CA (occurrence: CA)
  Receive Date: 20160223
  Receipt Date: 20160223
  Transmission Date: 20160526
  Serious: Yes (Hospitalization, Other)
  Sender: FDA-Public Use
  Company Number: CA-TEVA-636672ACC

PATIENT
  Age: 43 Year
  Sex: Female

DRUGS (1)
  1. PRAMIPEXOLE. [Suspect]
     Active Substance: PRAMIPEXOLE
     Indication: SLEEP DISORDER
     Dosage: 1 MILLIGRAM DAILY;
     Route: 065

REACTIONS (3)
  - Abnormal behaviour [Recovered/Resolved]
  - Hypersexuality [Recovered/Resolved]
  - Paraphilia [Recovered/Resolved]
